FAERS Safety Report 23130776 (Version 1)
Quarter: 2023Q4

REPORT INFORMATION
  Report Type: Spontaneous
  Country: US (occurrence: None)
  Receive Date: 20231031
  Receipt Date: 20231031
  Transmission Date: 20240110
  Serious: Yes (Other)
  Sender: FDA-Public Use
  Company Number: None

PATIENT
  Age: 75 Year
  Sex: Female
  Weight: 56.7 kg

DRUGS (3)
  1. BUPROPION HYDROCHLORIDE EXTENDED RELEASE [Suspect]
     Active Substance: BUPROPION HYDROCHLORIDE
     Indication: Depression
     Dosage: OTHER QUANTITY : 1 PILL;?FREQUENCY : DAILY;?
     Route: 048
     Dates: start: 2018, end: 2023
  2. METHOTREXATE [Concomitant]
     Active Substance: METHOTREXATE
  3. MONILUKAST [Concomitant]

REACTIONS (2)
  - Suicidal ideation [None]
  - Therapeutic product effect decreased [None]

NARRATIVE: CASE EVENT DATE: 20230601
